FAERS Safety Report 24349075 (Version 1)
Quarter: 2024Q3

REPORT INFORMATION
  Report Type: Spontaneous
  Country: ES (occurrence: ES)
  Receive Date: 20240923
  Receipt Date: 20240923
  Transmission Date: 20241016
  Serious: Yes (Hospitalization)
  Sender: TEVA
  Company Number: None

PATIENT
  Age: 96 Year
  Sex: Female

DRUGS (1)
  1. AMLODIPINE\HYDROCHLOROTHIAZIDE\OLMESARTAN [Suspect]
     Active Substance: AMLODIPINE\HYDROCHLOROTHIAZIDE\OLMESARTAN
     Indication: Hypertension
     Dosage: 1-0-0,40 MG/10 MG/25 MG 28 TABLETS
     Route: 048
     Dates: start: 20220930, end: 20240314

REACTIONS (1)
  - Hyponatraemia [Recovered/Resolved]

NARRATIVE: CASE EVENT DATE: 20240304
